FAERS Safety Report 21458440 (Version 1)
Quarter: 2022Q4

REPORT INFORMATION
  Report Type: Spontaneous
  Country: CH (occurrence: CH)
  Receive Date: 20221014
  Receipt Date: 20221014
  Transmission Date: 20230113
  Serious: Yes (Death, Life-Threatening, Hospitalization, Other)
  Sender: FDA-Public Use
  Company Number: None

PATIENT
  Age: 44 Year
  Sex: Female
  Weight: 64 kg

DRUGS (21)
  1. SOLU-MEDROL [Suspect]
     Active Substance: METHYLPREDNISOLONE SODIUM SUCCINATE
     Dosage: 250-500 MG, 1-2/X DAILY
     Route: 042
     Dates: start: 20220913, end: 20220921
  2. BACTRIM [Suspect]
     Active Substance: SULFAMETHOXAZOLE\TRIMETHOPRIM
     Dosage: FIRST 800/160 MG, CYCLIC (3X WEEKLY VIA TUBE), THEN 400/80MG, CYCLIC (3X WEEKLY VIA TUBE)
     Route: 048
     Dates: start: 20220912, end: 20220921
  3. ACETAMINOPHEN [Concomitant]
     Active Substance: ACETAMINOPHEN
     Dosage: 500MG - 1G, AS NECESSARY
     Route: 042
     Dates: start: 20220910, end: 20220920
  4. PROPOFOL LIPURO [Concomitant]
     Active Substance: PROPOFOL
     Dosage: AS NECESSARY
     Route: 042
     Dates: start: 20220910, end: 20220921
  5. TRANDATE [Concomitant]
     Active Substance: LABETALOL HYDROCHLORIDE
     Dosage: AS NECESSARY
     Route: 042
     Dates: start: 20220914, end: 20220918
  6. NOXAFIL [Concomitant]
     Active Substance: POSACONAZOLE
     Dosage: 200 MG, 1X/DAY
     Route: 042
     Dates: start: 20220826, end: 20220921
  7. PIPERACILLIN SODIUM\TAZOBACTAM SODIUM [Concomitant]
     Active Substance: PIPERACILLIN SODIUM\TAZOBACTAM SODIUM
     Dosage: UNK, 2X/DAY
     Route: 042
     Dates: start: 20220911, end: 20220921
  8. PIPERACILLIN SODIUM\TAZOBACTAM SODIUM [Concomitant]
     Active Substance: PIPERACILLIN SODIUM\TAZOBACTAM SODIUM
     Dosage: UNK, 3X/DAY
     Dates: start: 20220911, end: 20220922
  9. VALTREX [Concomitant]
     Active Substance: VALACYCLOVIR HYDROCHLORIDE
     Dosage: 250 MG, 2X/DAY VIA TUBE
     Route: 048
     Dates: start: 20220819, end: 20220921
  10. VANCOCIN [Concomitant]
     Active Substance: VANCOMYCIN HYDROCHLORIDE
     Dosage: 125-250MG, 3X/DAY VIA TUBE
     Route: 048
     Dates: start: 20220911, end: 20220921
  11. FOLIC ACID [Concomitant]
     Active Substance: FOLIC ACID
     Dosage: 5 MG, 1X/DAY
     Route: 048
     Dates: start: 20220918, end: 20220921
  12. KONAKION [Concomitant]
     Active Substance: PHYTONADIONE
     Dosage: 10 MG, 1X/DAY
     Route: 042
     Dates: start: 20220911, end: 20220920
  13. ESOMEPRAZOLE MAGNESIUM [Concomitant]
     Active Substance: ESOMEPRAZOLE MAGNESIUM
     Dosage: 40 MG, 1X/DAY VIA TUBE
     Route: 048
     Dates: start: 20220913, end: 20220921
  14. CERNEVIT [Concomitant]
     Active Substance: VITAMINS
     Dosage: 750 MG, 1X/DAY
     Route: 042
     Dates: start: 20220911, end: 20220920
  15. THIAMINE HYDROCHLORIDE [Concomitant]
     Active Substance: THIAMINE HYDROCHLORIDE
     Dosage: UNK
  16. NEUROBION [HYDROXOCOBALAMIN;PYRIDOXINE HYDROCHLORIDE;THIAMINE HYDROCHL [Concomitant]
     Dosage: UNK
  17. JEVITY PROMOTE [Concomitant]
     Dosage: UNK
     Route: 048
     Dates: start: 20220917, end: 20220921
  18. ACTEMRA [Concomitant]
     Active Substance: TOCILIZUMAB
     Dosage: 2 IN TOTAL
     Route: 042
     Dates: start: 20220909, end: 20220911
  19. CUBICIN [Concomitant]
     Active Substance: DAPTOMYCIN
     Dosage: 320 MG, 1X/DAY
     Route: 042
     Dates: start: 20220911, end: 20220913
  20. METRONIDAZOLE [Concomitant]
     Active Substance: METRONIDAZOLE
     Dosage: 500 MG, 2X/DAY
     Route: 042
     Dates: start: 20220911, end: 20220914
  21. HYDROMORPHONE [Concomitant]
     Active Substance: HYDROMORPHONE
     Dosage: AS NECESSARY
     Route: 042
     Dates: start: 20220913, end: 20220919

REACTIONS (3)
  - Death [Fatal]
  - Pancreatitis [Not Recovered/Not Resolved]
  - Hyperlipasaemia [Not Recovered/Not Resolved]

NARRATIVE: CASE EVENT DATE: 20220915
